FAERS Safety Report 6349544-6 (Version None)
Quarter: 2009Q3

REPORT INFORMATION
  Report Type: 
  Country: None (occurrence: None)
  Receive Date: 20090911
  Receipt Date: 20090904
  Transmission Date: 20100115
  Serious: Yes (Other)
  Sender: FDA-Public Use
  Company Number: US-ROCHE-655051

PATIENT
  Sex: Male
  Weight: 87.1 kg

DRUGS (10)
  1. KLONOPIN [Suspect]
     Indication: DRUG USE FOR UNKNOWN INDICATION
     Route: 048
     Dates: start: 20040101
  2. ZANAFLEX [Suspect]
     Indication: FIBROMYALGIA
     Route: 048
     Dates: start: 19960101
  3. AMBIEN [Suspect]
     Indication: DRUG USE FOR UNKNOWN INDICATION
     Dosage: AT NIGHT
     Route: 048
     Dates: start: 19990101
  4. SINGLET [Suspect]
     Indication: SEASONAL ALLERGY
     Route: 048
     Dates: start: 19990101
  5. OXYCODONE HCL AND ACETAMINOPHEN [Suspect]
     Indication: BREAKTHROUGH PAIN
     Dosage: 1-2 TABS TID PRN
     Route: 048
     Dates: start: 19960101
  6. OXYCODONE HCL AND ACETAMINOPHEN [Suspect]
     Dosage: 10 TABLETS WHEN REQUIRED
     Route: 048
  7. NEURONTIN [Suspect]
     Indication: FIBROMYALGIA
     Dosage: 300 MG, ON AN INCREASING DOSE
     Route: 048
     Dates: start: 20090825
  8. OPANA ER [Suspect]
     Indication: PAIN
     Dosage: STRENGTH: 30 MG
     Route: 048
     Dates: start: 20090812, end: 20090824
  9. OPANA ER [Suspect]
     Dosage: 2 IN MORNING, 1 AT MID DAY AND 2 AT NIGHT
     Route: 048
     Dates: start: 20090824, end: 20090825
  10. OPANA ER [Suspect]
     Dosage: STRENGTH: 40 MG
     Route: 048
     Dates: start: 20090825, end: 20090827

REACTIONS (10)
  - CONFUSIONAL STATE [None]
  - CONTUSION [None]
  - FACIAL BONES FRACTURE [None]
  - HAEMOPTYSIS [None]
  - HEADACHE [None]
  - LOSS OF CONSCIOUSNESS [None]
  - NAUSEA [None]
  - PERIORBITAL HAEMATOMA [None]
  - ROAD TRAFFIC ACCIDENT [None]
  - SKIN LACERATION [None]
